FAERS Safety Report 17064583 (Version 3)
Quarter: 2020Q1

REPORT INFORMATION
  Report Type: Spontaneous
  Country: US (occurrence: US)
  Receive Date: 20191122
  Receipt Date: 20200305
  Transmission Date: 20200409
  Serious: No
  Sender: FDA-Public Use
  Company Number: US-PFIZER INC-2019448201

PATIENT
  Age: 85 Year
  Sex: Female

DRUGS (1)
  1. NORPACE [Suspect]
     Active Substance: DISOPYRAMIDE PHOSPHATE
     Dosage: 150 MG, 3X/DAY

REACTIONS (2)
  - Influenza [Unknown]
  - Speech disorder [Unknown]
